FAERS Safety Report 8954921 (Version 1)
Quarter: 2012Q4

REPORT INFORMATION
  Report Type: Report from Study
  Country: CA (occurrence: CA)
  Receive Date: 20121210
  Receipt Date: 20121210
  Transmission Date: 20130627
  Serious: Yes (Other)
  Sender: FDA-Public Use
  Company Number: CA-JNJFOC-20121113878

PATIENT
  Age: 35 Year
  Sex: Female
  Weight: 72.3 kg

DRUGS (7)
  1. REMICADE [Suspect]
     Indication: PSORIATIC ARTHROPATHY
     Route: 042
     Dates: start: 20100226
  2. GABAPENTIN [Concomitant]
     Route: 065
  3. NABILONE [Concomitant]
     Route: 065
  4. CYCLOBENZAPRINE [Concomitant]
     Route: 065
  5. FENTANYL [Concomitant]
     Route: 065
  6. OXYCODONE [Concomitant]
     Route: 065
  7. CORTISONE [Concomitant]
     Route: 065

REACTIONS (1)
  - Cyst [Unknown]
